FAERS Safety Report 17849393 (Version 1)
Quarter: 2020Q2

REPORT INFORMATION
  Report Type: Spontaneous
  Country: US (occurrence: US)
  Receive Date: 20200601
  Receipt Date: 20200601
  Transmission Date: 20200714
  Serious: Yes (Death)
  Sender: FDA-Public Use
  Company Number: None

PATIENT
  Age: 47 Year
  Sex: Male
  Weight: 112 kg

DRUGS (19)
  1. FENTANYL DRIP [Concomitant]
     Dates: start: 20200511, end: 20200529
  2. REMDESIVIR. [Suspect]
     Active Substance: REMDESIVIR
     Indication: COVID-19
     Route: 042
     Dates: start: 20200522, end: 20200529
  3. VASOPRESSIN DRIP [Concomitant]
     Dates: start: 20200521, end: 20200529
  4. MUCOMYST 600MG BID VIA TUBE [Concomitant]
     Dates: start: 20200512, end: 20200529
  5. ROCURONIUM DRIP [Concomitant]
     Dates: start: 20200511, end: 20200529
  6. ASCOBIC ACID [Concomitant]
     Dates: start: 20200515, end: 20200529
  7. CHOLECALCIFEROL [Concomitant]
     Active Substance: CHOLECALCIFEROL
     Dates: start: 20200512, end: 20200529
  8. ZINC SULFATE. [Concomitant]
     Active Substance: ZINC SULFATE
     Dates: start: 20200512, end: 20200529
  9. VERSED DRIP [Concomitant]
     Dates: start: 20200519, end: 20200529
  10. SELENIUM [Concomitant]
     Active Substance: SELENIUM
     Dates: start: 20200512, end: 20200529
  11. TPN [Concomitant]
     Active Substance: AMINO ACIDS\DEXTROSE\ELECTROLYTES NOS\SOYBEAN OIL
     Dates: start: 20200522, end: 20200529
  12. PROTONIX [Concomitant]
     Active Substance: PANTOPRAZOLE SODIUM
     Dates: start: 20200517, end: 20200529
  13. VITAMIN E [Concomitant]
     Active Substance: .ALPHA.-TOCOPHEROL
     Dates: start: 20200512, end: 20200529
  14. HEPARIN [Concomitant]
     Active Substance: HEPARIN SODIUM
     Dates: start: 20200513, end: 20200529
  15. MIRALAX [Concomitant]
     Active Substance: POLYETHYLENE GLYCOL 3350
     Dates: start: 20200517, end: 20200529
  16. LEVOPRED DRIP [Concomitant]
     Dates: start: 20200520, end: 20200529
  17. DOCUSATE [Concomitant]
     Active Substance: DOCUSATE
     Dates: start: 20200512, end: 20200529
  18. REGULAR INSULIN [Concomitant]
     Active Substance: INSULIN NOS
     Dates: start: 20200523, end: 20200529
  19. VITAMIN A [Concomitant]
     Active Substance: VITAMIN A
     Dates: start: 20200512, end: 20200529

REACTIONS (1)
  - Death [None]

NARRATIVE: CASE EVENT DATE: 20200529
